FAERS Safety Report 8896402 (Version 1)
Quarter: 2012Q4

REPORT INFORMATION
  Report Type: Spontaneous
  Country: US (occurrence: None)
  Receive Date: 20121031
  Receipt Date: 20121031
  Transmission Date: 20130627
  Serious: Yes (Hospitalization)
  Sender: FDA-Public Use
  Company Number: UTC-024458

PATIENT
  Age: 19 Year
  Sex: Female

DRUGS (1)
  1. TYVASO (6 MICROGRAM, AEROSOL FOR INHALATION) (TREPROSTINIL SODIUM) [Suspect]
     Indication: PRIMARY PULMONARY HYPERTENSION
     Route: 055
     Dates: start: 20121005

REACTIONS (4)
  - Unresponsive to stimuli [None]
  - Chest pain [None]
  - Chest pain [None]
  - Fatigue [None]
